FAERS Safety Report 15336677 (Version 1)
Quarter: 2018Q3

REPORT INFORMATION
  Report Type: Spontaneous
  Country: TW (occurrence: TW)
  Receive Date: 20180830
  Receipt Date: 20180830
  Transmission Date: 20181010
  Serious: Yes (Hospitalization, Other)
  Sender: FDA-Public Use
  Company Number: TW-BAXTER-2018BAX022456

PATIENT
  Age: 87 Year
  Sex: Female
  Weight: 68.5 kg

DRUGS (19)
  1. ESTAZOLAM. [Suspect]
     Active Substance: ESTAZOLAM
     Indication: MAJOR DEPRESSION
     Route: 048
  2. SEVOFLURANE INHALATION ANESTHETIC LIQUID [Suspect]
     Active Substance: SEVOFLURANE
     Indication: MAINTENANCE OF ANAESTHESIA
     Route: 055
  3. LIDOCAINE. [Suspect]
     Active Substance: LIDOCAINE
     Indication: GENERAL ANAESTHESIA
     Route: 042
  4. ALPRAZOLAM. [Suspect]
     Active Substance: ALPRAZOLAM
     Indication: MAJOR DEPRESSION
  5. IMIPRAMINE [Suspect]
     Active Substance: IMIPRAMINE
     Indication: MAJOR DEPRESSION
  6. FENTANYL. [Suspect]
     Active Substance: FENTANYL
     Indication: GENERAL ANAESTHESIA
     Route: 042
  7. SUPRANE [Suspect]
     Active Substance: DESFLURANE
     Indication: MAINTENANCE OF ANAESTHESIA
     Route: 055
  8. ALPRAZOLAM. [Suspect]
     Active Substance: ALPRAZOLAM
     Indication: PANIC DISORDER
     Route: 048
  9. CISATRACURIUM. [Suspect]
     Active Substance: CISATRACURIUM
     Indication: ENDOTRACHEAL INTUBATION
     Route: 042
  10. SEROQUEL [Suspect]
     Active Substance: QUETIAPINE FUMARATE
     Indication: MAJOR DEPRESSION
     Dosage: HS
     Route: 048
  11. OXYGEN. [Concomitant]
     Active Substance: OXYGEN
     Indication: ANAESTHESIA PROCEDURE
     Route: 055
  12. PROPRANOLOL [Concomitant]
     Active Substance: PROPRANOLOL HYDROCHLORIDE
     Indication: HYPERTENSION
     Dosage: HYPERTENSION WAS UNDER CONTROL WITH PROPRANOLOL 10 MG BID TREATMENT FOR 10 YEARS
     Route: 048
  13. ESCITALOPRAM [Concomitant]
     Active Substance: ESCITALOPRAM OXALATE
     Indication: MAJOR DEPRESSION
  14. PIROXICAM. [Concomitant]
     Active Substance: PIROXICAM
     Indication: PANIC DISORDER
     Route: 065
  15. ESTAZOLAM. [Suspect]
     Active Substance: ESTAZOLAM
     Indication: PANIC DISORDER
  16. IMIPRAMINE [Suspect]
     Active Substance: IMIPRAMINE
     Indication: PANIC DISORDER
     Dosage: HS, LONG TERM TREATMENT
     Route: 048
  17. PROVIVE [Suspect]
     Active Substance: PROPOFOL
     Indication: GENERAL ANAESTHESIA
     Route: 042
  18. SEROQUEL [Suspect]
     Active Substance: QUETIAPINE FUMARATE
     Indication: PANIC DISORDER
  19. ESCITALOPRAM [Concomitant]
     Active Substance: ESCITALOPRAM OXALATE
     Indication: PANIC DISORDER
     Route: 065

REACTIONS (3)
  - Procedural hypotension [Recovered/Resolved]
  - Bradycardia [Recovered/Resolved]
  - Drug interaction [Recovered/Resolved]
